FAERS Safety Report 6543951-4 (Version None)
Quarter: 2010Q1

REPORT INFORMATION
  Report Type: 
  Country: None (occurrence: None)
  Receive Date: 20100120
  Receipt Date: 20100113
  Transmission Date: 20100710
  Serious: Yes (Death)
  Sender: FDA-Public Use
  Company Number: JP-ALLERGAN-0917700US

PATIENT
  Age: 12 Year
  Sex: Male

DRUGS (8)
  1. BOTOX [Suspect]
     Indication: TORTICOLLIS
     Dosage: 150 UNITS, SINGLE
     Route: 030
     Dates: start: 20091221, end: 20091221
  2. BOTOX [Suspect]
     Dosage: 150 UNITS, UNK
     Route: 030
     Dates: start: 20040403, end: 20040403
  3. TEGRETOL [Concomitant]
     Indication: EPILEPSY
     Dosage: 300 MG, BID
     Route: 048
  4. PHENOBARBITAL TAB [Concomitant]
     Indication: EPILEPSY
     Dosage: 50 MG, TID
     Route: 048
  5. EXCEGRAN [Concomitant]
     Indication: EPILEPSY
     Dosage: 200 MG, BID
     Route: 048
  6. DIAZEPAM [Concomitant]
     Indication: TORTICOLLIS
     Dosage: 10 MG, TID
     Route: 048
  7. TIZANIDINE HCL [Concomitant]
     Indication: TORTICOLLIS
     Dosage: 3 MG, TID
     Route: 048
  8. GABALON [Concomitant]
     Indication: TORTICOLLIS
     Dosage: 15 MG, TID
     Route: 048

REACTIONS (1)
  - SUDDEN DEATH [None]
